FAERS Safety Report 11826313 (Version 1)
Quarter: 2015Q4

REPORT INFORMATION
  Report Type: Spontaneous
  Country: US (occurrence: None)
  Receive Date: 20151210
  Receipt Date: 20151210
  Transmission Date: 20160305
  Serious: No
  Sender: FDA-Public Use
  Company Number: None

PATIENT
  Age: 60 Year
  Sex: Male

DRUGS (2)
  1. UNKNOWN INJECTIBLE [Concomitant]
  2. CAPECITABINE 500MG TAB [Suspect]
     Active Substance: CAPECITABINE
     Indication: NEOPLASM MALIGNANT
     Dosage: 2000 MG BID FOR 14D, 7 OFF ORAL
     Route: 048
     Dates: start: 20151023

REACTIONS (2)
  - Joint swelling [None]
  - Thrombosis [None]

NARRATIVE: CASE EVENT DATE: 201511
